FAERS Safety Report 24715013 (Version 1)
Quarter: 2024Q4

REPORT INFORMATION
  Report Type: Spontaneous
  Country: US (occurrence: US)
  Receive Date: 20241210
  Receipt Date: 20241210
  Transmission Date: 20250115
  Serious: No
  Sender: ALEXION PHARMACEUTICALS
  Company Number: US-AstraZeneca-CH-00764145AP

PATIENT

DRUGS (4)
  1. BYETTA [Suspect]
     Active Substance: EXENATIDE
     Dosage: 250MCG, 1.2ML PEN
     Route: 065
  2. BYETTA [Suspect]
     Active Substance: EXENATIDE
     Dosage: 250MCG, 1.2ML PEN
     Route: 065
  3. BYETTA [Suspect]
     Active Substance: EXENATIDE
     Dosage: 250MCG, 1.2ML PEN
     Route: 065
  4. BYETTA [Suspect]
     Active Substance: EXENATIDE
     Dosage: 250MCG, 1.2ML PEN
     Route: 065

REACTIONS (2)
  - Product dose omission issue [Unknown]
  - Device breakage [Unknown]
